FAERS Safety Report 4730898-9 (Version None)
Quarter: 2005Q3

REPORT INFORMATION
  Report Type: 
  Country: None (occurrence: None)
  Receive Date: 20050728
  Receipt Date: 20050609
  Transmission Date: 20060218
  Serious: Yes (Hospitalization)
  Sender: FDA-Public Use
  Company Number: ELN92045-352

PATIENT
  Age: 62 Year
  Sex: Male
  Weight: 74.4 kg

DRUGS (4)
  1. PRIALT [Suspect]
     Indication: PAIN
     Dosage: 0.27 MCG/HR INTRATHECAL
     Route: 037
     Dates: start: 20040809
  2. DICLOFENAC SODIUM [Concomitant]
  3. AMITRIPTYLINE HCL [Concomitant]
  4. DIAZEPAM [Concomitant]

REACTIONS (1)
  - SUICIDAL IDEATION [None]
